FAERS Safety Report 8354282 (Version 2)
Quarter: 2012Q4

REPORT INFORMATION
  Report Type: 
  Country: CA (occurrence: CA)
  Receive Date: 20120125
  Receipt Date: 20121228
  Transmission Date: 20130627
  Serious: Yes (Other)
  Sender: FDA-Public Use
  Company Number: CA-JNJFOC-20120110092

PATIENT
  Age: 56 None
  Sex: Female
  Weight: 68.95 kg

DRUGS (3)
  1. ELMIRON [Suspect]
     Indication: CYSTITIS INTERSTITIAL
     Route: 048
     Dates: start: 20120103
  2. CELEXA [Concomitant]
     Indication: DEPRESSION
     Route: 065
     Dates: start: 201108, end: 201110
  3. CIPRALEX [Concomitant]
     Indication: DEPRESSION
     Route: 048
     Dates: start: 201110

REACTIONS (5)
  - Depression [Not Recovered/Not Resolved]
  - Anxiety [Recovering/Resolving]
  - Memory impairment [Not Recovered/Not Resolved]
  - Fatigue [Not Recovered/Not Resolved]
  - Nausea [Unknown]
